FAERS Safety Report 6444565-7 (Version None)
Quarter: 2009Q4

REPORT INFORMATION
  Report Type: 
  Country: None (occurrence: None)
  Receive Date: 20091118
  Receipt Date: 20090903
  Transmission Date: 20100525
  Serious: No
  Sender: FDA-Public Use
  Company Number: A0805809A

PATIENT
  Age: 76 Year
  Sex: Female

DRUGS (4)
  1. COREG CR [Suspect]
     Dosage: 5MG PER DAY
     Route: 048
     Dates: start: 20090612
  2. DIGOXIN [Suspect]
     Indication: CARDIAC FAILURE
     Route: 065
     Dates: start: 20090609
  3. CARVEDILOL [Suspect]
     Indication: CARDIAC FAILURE
     Dosage: 6.25MG TWICE PER DAY
     Route: 048
  4. COZAAR [Concomitant]

REACTIONS (4)
  - CARDIOACTIVE DRUG LEVEL DECREASED [None]
  - DIZZINESS [None]
  - FATIGUE [None]
  - PALPITATIONS [None]
